FAERS Safety Report 8888151 (Version 1)
Quarter: 2012Q4

REPORT INFORMATION
  Report Type: 
  Country: US (occurrence: US)
  Receive Date: 20121106
  Receipt Date: 20121106
  Transmission Date: 20130627
  Serious: Yes (Hospitalization, Other)
  Sender: FDA-Public Use
  Company Number: US-MERCK-1211USA000057

PATIENT
  Age: 51 None
  Sex: Female

DRUGS (1)
  1. PEGINTRON [Suspect]
     Indication: HEPATITIS C
     Dosage: UNK
     Dates: start: 20100415, end: 20101014

REACTIONS (9)
  - Hepatic cirrhosis [Unknown]
  - Cholecystectomy [Unknown]
  - Apnoea [Unknown]
  - Back pain [Unknown]
  - Pancreatic cyst [Unknown]
  - Gait disturbance [Unknown]
  - Blood pressure abnormal [Unknown]
  - Hepatitis C [Unknown]
  - Dyspnoea [Unknown]
